FAERS Safety Report 9690131 (Version 2)
Quarter: 2013Q4

REPORT INFORMATION
  Report Type: Spontaneous
  Country: US (occurrence: US)
  Receive Date: 20131115
  Receipt Date: 20131115
  Transmission Date: 20140711
  Serious: Yes (Hospitalization, Other)
  Sender: FDA-Public Use
  Company Number: PHEH2013US018008

PATIENT
  Age: 41 Year
  Sex: Female
  Weight: 123 kg

DRUGS (8)
  1. TOBI PODHALER [Suspect]
     Indication: CYSTIC FIBROSIS
     Dosage: 4 DF, BID
  2. TOBI PODHALER [Suspect]
     Dosage: 300 MG, BID
  3. ADVAIR [Concomitant]
     Indication: BRONCHIAL HYPERREACTIVITY
     Dosage: 500/50
  4. SPIRIVA [Concomitant]
     Indication: BRONCHIAL HYPERREACTIVITY
     Dosage: UNK UKN, QD
  5. ALBUTEROL [Concomitant]
     Indication: BRONCHIAL HYPERREACTIVITY
     Dosage: UNK UKN, TID
  6. PULMOZYME [Concomitant]
     Dosage: UNK UKN, DAILY
  7. PRILOSEC [Concomitant]
     Indication: GASTROOESOPHAGEAL REFLUX DISEASE
     Dosage: 1 DF, QD
  8. AMLODIPINE [Concomitant]
     Indication: HYPERTENSION
     Dosage: 5 MG, QD

REACTIONS (8)
  - Pneumonia [Unknown]
  - Dyspnoea [Recovered/Resolved]
  - Bronchospasm [Recovered/Resolved]
  - Pulmonary function test decreased [Recovered/Resolved]
  - Forced expiratory volume decreased [Unknown]
  - Exercise tolerance decreased [Unknown]
  - Spirometry abnormal [Unknown]
  - Drug intolerance [Unknown]
